FAERS Safety Report 25608120 (Version 4)
Quarter: 2025Q4

REPORT INFORMATION
  Report Type: Report from Study
  Country: US (occurrence: US)
  Receive Date: 20250725
  Receipt Date: 20251029
  Transmission Date: 20260118
  Serious: Yes (Other)
  Sender: JOHNSON AND JOHNSON
  Company Number: US-JNJFOC-20250723503

PATIENT
  Age: 70 Year
  Sex: Male
  Weight: 88.5 kg

DRUGS (74)
  1. CILTACABTAGENE AUTOLEUCEL [Suspect]
     Active Substance: CILTACABTAGENE AUTOLEUCEL
     Indication: Plasma cell myeloma
     Dosage: ONCE
     Route: 042
     Dates: start: 20250611, end: 20250611
  2. FLUDARABINE [Concomitant]
     Active Substance: FLUDARABINE PHOSPHATE
     Indication: Chemotherapy
     Dates: start: 20250606, end: 20250608
  3. CYCLOPHOSPHAMIDE [Concomitant]
     Active Substance: CYCLOPHOSPHAMIDE
     Indication: Chemotherapy
     Route: 042
     Dates: start: 20250606, end: 20250608
  4. TYLENOL [Concomitant]
     Active Substance: ACETAMINOPHEN
     Indication: Premedication
     Dosage: ONCE; ADMINISTER 60 MINUTES PRIOR TO CAR-T PRODUCT
     Route: 048
     Dates: start: 20250611, end: 20250611
  5. TYLENOL [Concomitant]
     Active Substance: ACETAMINOPHEN
     Indication: Pain
     Route: 048
     Dates: start: 20250611, end: 20250624
  6. TYLENOL [Concomitant]
     Active Substance: ACETAMINOPHEN
     Dosage: AS NECESSARY
     Route: 048
     Dates: start: 20250409, end: 20250410
  7. ZYLOPRIM [Concomitant]
     Active Substance: ALLOPURINOL
     Indication: Product used for unknown indication
     Route: 048
     Dates: start: 20250512, end: 20250515
  8. ZYLOPRIM [Concomitant]
     Active Substance: ALLOPURINOL
     Route: 048
     Dates: start: 20250620, end: 20250624
  9. CATHFLO ACTIVASE [Concomitant]
     Active Substance: ALTEPLASE
     Indication: Product used for unknown indication
     Dates: start: 20250611, end: 20250611
  10. CALCIUM CARBONATE [Concomitant]
     Active Substance: CALCIUM CARBONATE
     Indication: Product used for unknown indication
     Dosage: ONCE
     Route: 048
     Dates: start: 20250617, end: 20250617
  11. CALCIUM CARBONATE [Concomitant]
     Active Substance: CALCIUM CARBONATE
     Dosage: ONCE
     Route: 048
     Dates: start: 20250615, end: 20250615
  12. CALCIUM CARBONATE [Concomitant]
     Active Substance: CALCIUM CARBONATE
     Dosage: ONCE
     Route: 048
     Dates: start: 20250409, end: 20250410
  13. CALCIUM CARBONATE [Concomitant]
     Active Substance: CALCIUM CARBONATE
     Dosage: ONCE
     Route: 048
     Dates: start: 20250618, end: 20250618
  14. CALCIUM GLUCONATE [Concomitant]
     Active Substance: CALCIUM GLUCONATE
     Indication: Product used for unknown indication
     Dosage: ONCE
     Route: 042
     Dates: start: 20250612, end: 20250612
  15. CALCIUM GLUCONATE [Concomitant]
     Active Substance: CALCIUM GLUCONATE
     Dosage: ONCE
     Route: 042
     Dates: start: 20250623, end: 20250623
  16. CALCIUM GLUCONATE [Concomitant]
     Active Substance: CALCIUM GLUCONATE
     Dosage: ONCE
     Route: 042
     Dates: start: 20250616, end: 20250616
  17. CALCIUM GLUCONATE [Concomitant]
     Active Substance: CALCIUM GLUCONATE
     Dosage: ONCE
     Route: 042
     Dates: start: 20250614, end: 20250614
  18. CALCIUM GLUCONATE [Concomitant]
     Active Substance: CALCIUM GLUCONATE
     Dosage: ONCE
     Route: 042
     Dates: start: 20250608, end: 20250608
  19. CALCIUM GLUCONATE [Concomitant]
     Active Substance: CALCIUM GLUCONATE
     Dosage: ONCE
     Route: 042
     Dates: start: 20250409, end: 20250409
  20. CLOTRIMAZOLE [Concomitant]
     Active Substance: CLOTRIMAZOLE
     Indication: Product used for unknown indication
     Route: 048
     Dates: start: 20250619, end: 20250624
  21. DIPHENHYDRAMINE [Concomitant]
     Active Substance: DIPHENHYDRAMINE
     Indication: Product used for unknown indication
     Dosage: ONCE
     Route: 042
     Dates: start: 20250611, end: 20250624
  22. DIPHENHYDRAMINE [Concomitant]
     Active Substance: DIPHENHYDRAMINE
     Dosage: ONCE
     Route: 042
     Dates: start: 20250611, end: 20250611
  23. PEPCID [Concomitant]
     Active Substance: FAMOTIDINE
     Indication: Product used for unknown indication
     Dosage: ONCE AS NEEDED
     Route: 042
     Dates: start: 20250611, end: 20250624
  24. FILGRASTIM [Concomitant]
     Active Substance: FILGRASTIM
     Indication: Product used for unknown indication
     Dosage: 5 MGG/KG/DAY;NIGHTLY
     Route: 058
  25. DIFLUCAN [Concomitant]
     Active Substance: FLUCONAZOLE
     Indication: Prophylaxis
     Route: 048
     Dates: start: 20250611, end: 20250624
  26. FLUDARA [Concomitant]
     Active Substance: FLUDARABINE PHOSPHATE
     Indication: Chemotherapy
     Route: 042
     Dates: start: 20250607, end: 20250607
  27. FLUDARA [Concomitant]
     Active Substance: FLUDARABINE PHOSPHATE
     Route: 042
     Dates: start: 20250606, end: 20250606
  28. FLUDARA [Concomitant]
     Active Substance: FLUDARABINE PHOSPHATE
     Route: 042
     Dates: start: 20250608, end: 20250608
  29. LEVAQUIN [Concomitant]
     Active Substance: LEVOFLOXACIN
     Indication: Prophylaxis
     Route: 048
     Dates: start: 20250611, end: 20250624
  30. Prinivil, Zestril [Concomitant]
     Indication: Product used for unknown indication
     Route: 048
     Dates: start: 20250512, end: 20250517
  31. Prinivil, Zestril [Concomitant]
     Dosage: PAUSED
     Route: 048
     Dates: start: 20250612, end: 20250624
  32. MAGNESIUM OXIDE [Concomitant]
     Active Substance: MAGNESIUM OXIDE
     Indication: Product used for unknown indication
     Dosage: ONCE
     Route: 048
     Dates: start: 20250608, end: 20250608
  33. MAGNESIUM OXIDE [Concomitant]
     Active Substance: MAGNESIUM OXIDE
     Dosage: ONCE
     Route: 048
     Dates: start: 20250607, end: 20250607
  34. MAGNESIUM OXIDE [Concomitant]
     Active Substance: MAGNESIUM OXIDE
     Dosage: ONCE
     Route: 048
     Dates: start: 20250423, end: 20250424
  35. MAGNESIUM OXIDE [Concomitant]
     Active Substance: MAGNESIUM OXIDE
     Dosage: ONCE
     Route: 048
     Dates: start: 20250610, end: 20250610
  36. MAGNESIUM SULFATE [Concomitant]
     Active Substance: MAGNESIUM SULFATE
     Indication: Product used for unknown indication
     Dosage: AS NEEDED
     Route: 042
     Dates: start: 20250611, end: 20250624
  37. MAGNESIUM SULFATE [Concomitant]
     Active Substance: MAGNESIUM SULFATE
     Dosage: AS NEEDED
     Route: 042
     Dates: start: 20250610, end: 20250611
  38. MAGNESIUM SULFATE [Concomitant]
     Active Substance: MAGNESIUM SULFATE
     Dosage: AS NEEDED
     Route: 042
     Dates: start: 20250514, end: 20250515
  39. MAGNESIUM SULFATE [Concomitant]
     Active Substance: MAGNESIUM SULFATE
     Dosage: AS NEEDED
     Route: 042
     Dates: start: 20250513, end: 20250514
  40. MAGNESIUM SULFATE [Concomitant]
     Active Substance: MAGNESIUM SULFATE
     Dosage: AS NEEDED
     Route: 042
     Dates: start: 20250622, end: 20250622
  41. MAGNESIUM SULFATE [Concomitant]
     Active Substance: MAGNESIUM SULFATE
     Dosage: AS NEEDED
     Route: 042
     Dates: start: 20250611, end: 20250620
  42. MAGNESIUM SULFATE [Concomitant]
     Active Substance: MAGNESIUM SULFATE
     Dosage: AS NEEDED
     Route: 042
     Dates: start: 20250609, end: 20250610
  43. MAGNESIUM SULFATE [Concomitant]
     Active Substance: MAGNESIUM SULFATE
     Dosage: AS NEEDED
     Route: 042
     Dates: start: 20250512, end: 20250512
  44. MAGNESIUM SULFATE [Concomitant]
     Active Substance: MAGNESIUM SULFATE
     Dosage: AS NEEDED
     Route: 042
     Dates: start: 20250327, end: 20250328
  45. MAGNESIUM SULFATE [Concomitant]
     Active Substance: MAGNESIUM SULFATE
     Dosage: AS NEEDED
     Route: 042
     Dates: start: 20250620, end: 20250624
  46. MELATONIN [Concomitant]
     Active Substance: MELATONIN
     Indication: Product used for unknown indication
     Dosage: NIGHTLY; FOR SLEEP
     Route: 048
     Dates: start: 20250611, end: 20250624
  47. METOPROLOL SUCCINATE [Concomitant]
     Active Substance: METOPROLOL SUCCINATE
     Indication: Product used for unknown indication
     Route: 048
     Dates: start: 20250512, end: 20250517
  48. METOPROLOL SUCCINATE [Concomitant]
     Active Substance: METOPROLOL SUCCINATE
     Route: 048
     Dates: start: 20250612, end: 20250624
  49. ZYPREXA [Concomitant]
     Active Substance: OLANZAPINE
     Indication: Product used for unknown indication
     Dosage: ONCE
     Route: 048
     Dates: start: 20250607, end: 20250607
  50. ZYPREXA [Concomitant]
     Active Substance: OLANZAPINE
     Dosage: ONCE
     Route: 048
     Dates: start: 20250606, end: 20250606
  51. ZYPREXA [Concomitant]
     Active Substance: OLANZAPINE
     Dosage: ONCE
     Route: 048
     Dates: start: 20250512, end: 20250516
  52. ZYPREXA [Concomitant]
     Active Substance: OLANZAPINE
     Dosage: ONCE
     Route: 048
     Dates: start: 20250608, end: 20250608
  53. ZOFRAN [Concomitant]
     Active Substance: ONDANSETRON HYDROCHLORIDE
     Indication: Product used for unknown indication
     Route: 042
     Dates: start: 20250611, end: 20250624
  54. ZOFRAN [Concomitant]
     Active Substance: ONDANSETRON HYDROCHLORIDE
     Route: 048
     Dates: start: 20250606, end: 20250608
  55. ZOFRAN [Concomitant]
     Active Substance: ONDANSETRON HYDROCHLORIDE
     Route: 048
     Dates: start: 20250512, end: 20250516
  56. ZOFRAN [Concomitant]
     Active Substance: ONDANSETRON HYDROCHLORIDE
     Route: 048
     Dates: start: 20250611, end: 20250624
  57. PROTONIX [Concomitant]
     Active Substance: PANTOPRAZOLE SODIUM
     Indication: Product used for unknown indication
     Route: 048
     Dates: start: 20250512, end: 20250517
  58. PROTONIX [Concomitant]
     Active Substance: PANTOPRAZOLE SODIUM
     Route: 048
     Dates: start: 20250611, end: 20250624
  59. POTASSIUM CHLORIDE [Concomitant]
     Active Substance: POTASSIUM CHLORIDE
     Indication: Product used for unknown indication
     Route: 042
     Dates: start: 20250611, end: 20250624
  60. POTASSIUM CHLORIDE [Concomitant]
     Active Substance: POTASSIUM CHLORIDE
     Route: 042
     Dates: start: 20250610, end: 20250610
  61. POTASSIUM CHLORIDE [Concomitant]
     Active Substance: POTASSIUM CHLORIDE
     Route: 042
     Dates: start: 20250327, end: 20250327
  62. POTASSIUM CHLORIDE [Concomitant]
     Active Substance: POTASSIUM CHLORIDE
     Route: 048
     Dates: start: 20250610, end: 20250611
  63. XARELTO [Concomitant]
     Active Substance: RIVAROXABAN
     Indication: Product used for unknown indication
     Route: 048
     Dates: start: 20250512, end: 20250517
  64. XARELTO [Concomitant]
     Active Substance: RIVAROXABAN
     Route: 048
     Dates: start: 20250612, end: 20250624
  65. SODIUM CHLORIDE [Concomitant]
     Active Substance: SODIUM CHLORIDE
     Indication: Product used for unknown indication
     Route: 042
     Dates: start: 20250512, end: 20250515
  66. SODIUM CHLORIDE [Concomitant]
     Active Substance: SODIUM CHLORIDE
     Route: 042
     Dates: start: 20250409, end: 20250409
  67. SODIUM CHLORIDE [Concomitant]
     Active Substance: SODIUM CHLORIDE
     Route: 042
     Dates: start: 20250613, end: 20250613
  68. SODIUM CHLORIDE [Concomitant]
     Active Substance: SODIUM CHLORIDE
     Route: 042
     Dates: start: 20250409, end: 20250410
  69. SODIUM CHLORIDE [Concomitant]
     Active Substance: SODIUM CHLORIDE
     Route: 042
     Dates: start: 20250618, end: 20250618
  70. ACTEMRA [Concomitant]
     Active Substance: TOCILIZUMAB
     Indication: Product used for unknown indication
     Route: 042
     Dates: start: 20250611, end: 20250624
  71. VALTREX [Concomitant]
     Active Substance: VALACYCLOVIR HYDROCHLORIDE
     Indication: Prophylaxis
     Route: 048
     Dates: start: 20250512, end: 20250517
  72. VALTREX [Concomitant]
     Active Substance: VALACYCLOVIR HYDROCHLORIDE
     Route: 048
     Dates: start: 20250611, end: 20250624
  73. MEPRON [Concomitant]
     Active Substance: ATOVAQUONE
     Indication: Product used for unknown indication
     Route: 048
  74. COMPAZINE [Concomitant]
     Active Substance: PROCHLORPERAZINE MALEATE
     Indication: Product used for unknown indication
     Route: 048

REACTIONS (1)
  - Immune effector cell-associated haematotoxicity [Recovered/Resolved]

NARRATIVE: CASE EVENT DATE: 20250717
